FAERS Safety Report 9757974 (Version 1)
Quarter: 2013Q4

REPORT INFORMATION
  Report Type: Spontaneous
  Country: US (occurrence: US)
  Receive Date: 20131216
  Receipt Date: 20131216
  Transmission Date: 20140711
  Serious: No
  Sender: FDA-Public Use
  Company Number: US-TEVA-410902USA

PATIENT
  Age: 43 Year
  Sex: Female
  Weight: 88.53 kg

DRUGS (2)
  1. PARAGARD 380A [Suspect]
     Indication: CONTRACEPTION
     Route: 015
     Dates: start: 20080409, end: 20130603
  2. CLARITIN [Concomitant]
     Indication: HYPERSENSITIVITY

REACTIONS (3)
  - Medical device complication [Not Recovered/Not Resolved]
  - Metrorrhagia [Unknown]
  - Menorrhagia [Unknown]
